FAERS Safety Report 7400442-6 (Version None)
Quarter: 2011Q2

REPORT INFORMATION
  Report Type: 
  Country: None (occurrence: None)
  Receive Date: 20110407
  Receipt Date: 20110329
  Transmission Date: 20111010
  Serious: Yes (Hospitalization, Other)
  Sender: FDA-Public Use
  Company Number: US-BAXTER-2009BH013217

PATIENT
  Age: 65 Year
  Sex: Male
  Weight: 81 kg

DRUGS (16)
  1. HEPARIN SODIUM INJECTION [Suspect]
     Route: 042
     Dates: start: 20080130, end: 20080130
  2. HEPARIN SODIUM INJECTION [Suspect]
     Route: 040
     Dates: start: 20081025, end: 20081025
  3. HEPARIN SODIUM 1,000 UNITS AND SODIUM CHLORIDE 0.9% [Suspect]
     Indication: ARTERIAL BYPASS OPERATION
     Route: 042
     Dates: start: 20080130
  4. HEPARIN SODIUM INJECTION [Suspect]
     Route: 042
     Dates: start: 20080130, end: 20080130
  5. HEPARIN SODIUM INJECTION [Suspect]
     Route: 061
     Dates: start: 20071029, end: 20081029
  6. HEPARIN SODIUM 5,000 UNITS IN DEXTROSE 5% [Suspect]
     Route: 041
     Dates: start: 20081127, end: 20081129
  7. HEPARIN SODIUM INJECTION [Suspect]
     Route: 040
     Dates: start: 20081025, end: 20081025
  8. HEPARIN SODIUM INJECTION [Suspect]
     Route: 042
     Dates: start: 20081126, end: 20081126
  9. HEPARIN SODIUM INJECTION [Suspect]
     Indication: ARTERIAL BYPASS OPERATION
     Route: 042
     Dates: start: 20080130, end: 20080130
  10. HEPARIN SODIUM INJECTION [Suspect]
     Route: 061
     Dates: start: 20071029, end: 20081029
  11. HEPARIN SODIUM 5,000 UNITS IN DEXTROSE 5% [Suspect]
     Indication: PERIPHERAL ISCHAEMIA
     Route: 041
     Dates: start: 20081025, end: 20081027
  12. HEPARIN SODIUM INJECTION [Suspect]
     Indication: PERIPHERAL ISCHAEMIA
     Route: 042
     Dates: start: 20080130, end: 20080130
  13. HEPARIN SODIUM INJECTION [Suspect]
     Route: 042
     Dates: start: 20080130, end: 20080130
  14. HEPARIN SODIUM INJECTION [Suspect]
     Route: 042
     Dates: start: 20080130, end: 20080130
  15. HEPARIN SODIUM INJECTION [Suspect]
     Route: 042
     Dates: start: 20081126, end: 20081126
  16. DAILY MULTIVITAMIN [Concomitant]
     Indication: PRODUCT USED FOR UNKNOWN INDICATION
     Route: 065

REACTIONS (14)
  - ORTHOSTATIC HYPOTENSION [None]
  - ABASIA [None]
  - HIP FRACTURE [None]
  - MALAISE [None]
  - SYNCOPE [None]
  - CONFUSIONAL STATE [None]
  - ABDOMINAL PAIN [None]
  - PNEUMONIA KLEBSIELLA [None]
  - HYPERSENSITIVITY [None]
  - UROSEPSIS [None]
  - DRY GANGRENE [None]
  - TRANSIENT ISCHAEMIC ATTACK [None]
  - PERIPHERAL ISCHAEMIA [None]
  - PYREXIA [None]
